FAERS Safety Report 7044054-5 (Version None)
Quarter: 2010Q4

REPORT INFORMATION
  Report Type: 
  Country: None (occurrence: None)
  Receive Date: 20101013
  Receipt Date: 20101004
  Transmission Date: 20110411
  Serious: Yes (Other)
  Sender: FDA-Public Use
  Company Number: ZA-PFIZER INC-2010125127

PATIENT
  Age: 81 Year
  Sex: Male

DRUGS (2)
  1. GEODON [Suspect]
     Indication: ANXIETY POSTOPERATIVE
     Dosage: 20 MG, UNK
     Dates: start: 20100901, end: 20100901
  2. GEODON [Suspect]
     Indication: AGITATION

REACTIONS (5)
  - ATRIAL FIBRILLATION [None]
  - BLOOD PRESSURE DECREASED [None]
  - MUSCLE DISORDER [None]
  - PARKINSONISM [None]
  - RESPIRATORY ARREST [None]
